FAERS Safety Report 21328596 (Version 2)
Quarter: 2023Q4

REPORT INFORMATION
  Report Type: Spontaneous
  Country: US (occurrence: US)
  Receive Date: 20220913
  Receipt Date: 20231002
  Transmission Date: 20240109
  Serious: Yes (Other)
  Sender: FDA-Public Use
  Company Number: US-BEH-2022149332

PATIENT
  Age: 55 Year
  Sex: Male

DRUGS (10)
  1. IDELVION [Suspect]
     Active Substance: COAGULATION FACTOR IX RECOMBINANT HUMAN
     Indication: Factor IX deficiency
     Dosage: 4000 INTERNATIONAL UNIT, QOW
     Route: 042
     Dates: start: 20220301
  2. IDELVION [Suspect]
     Active Substance: COAGULATION FACTOR IX RECOMBINANT HUMAN
     Indication: Factor IX deficiency
     Dosage: 4000 INTERNATIONAL UNIT, QOW
     Route: 042
     Dates: start: 20220301
  3. IDELVION [Suspect]
     Active Substance: COAGULATION FACTOR IX RECOMBINANT HUMAN
     Dosage: 900 INTERNATIONAL UNIT, QOW
     Route: 042
     Dates: start: 20220702
  4. IDELVION [Suspect]
     Active Substance: COAGULATION FACTOR IX RECOMBINANT HUMAN
     Dosage: 900 INTERNATIONAL UNIT, QOW
     Route: 042
     Dates: start: 20220702
  5. IDELVION [Suspect]
     Active Substance: COAGULATION FACTOR IX RECOMBINANT HUMAN
     Dosage: 8800 INTERNATIONAL UNIT, QOW (EVERY TWO WEEKS FOR PROPHY)
     Route: 042
     Dates: start: 202202
  6. IDELVION [Suspect]
     Active Substance: COAGULATION FACTOR IX RECOMBINANT HUMAN
     Dosage: 8800 INTERNATIONAL UNIT, QOW (EVERY TWO WEEKS FOR PROPHY)
     Route: 042
     Dates: start: 202202
  7. IDELVION [Suspect]
     Active Substance: COAGULATION FACTOR IX RECOMBINANT HUMAN
     Dosage: 4400 INTERNATIONAL UNIT, PRN (FOR MINOR BLEEDING)
     Route: 042
     Dates: start: 202202
  8. IDELVION [Suspect]
     Active Substance: COAGULATION FACTOR IX RECOMBINANT HUMAN
     Dosage: 4400 INTERNATIONAL UNIT, PRN (FOR MINOR BLEEDING)
     Route: 042
     Dates: start: 202202
  9. IDELVION [Suspect]
     Active Substance: COAGULATION FACTOR IX RECOMBINANT HUMAN
     Dosage: 8800 INTERNATIONAL UNIT, PRN (FOR JOINT OR SEVERE BLEEDING)
     Route: 042
     Dates: start: 202202
  10. IDELVION [Suspect]
     Active Substance: COAGULATION FACTOR IX RECOMBINANT HUMAN
     Dosage: 8800 INTERNATIONAL UNIT, PRN (FOR JOINT OR SEVERE BLEEDING)
     Route: 042
     Dates: start: 202202

REACTIONS (3)
  - Haemorrhage [Unknown]
  - Gingival bleeding [Unknown]
  - Gingival bleeding [Not Recovered/Not Resolved]

NARRATIVE: CASE EVENT DATE: 20230901
